FAERS Safety Report 9611778 (Version 1)
Quarter: 2013Q4

REPORT INFORMATION
  Report Type: Spontaneous
  Country: PT (occurrence: PT)
  Receive Date: 20131010
  Receipt Date: 20131010
  Transmission Date: 20140711
  Serious: Yes (Other)
  Sender: FDA-Public Use
  Company Number: PT-ABBVIE-13P-130-1153614-00

PATIENT
  Sex: Female

DRUGS (3)
  1. VALPROIC ACID [Suspect]
     Indication: PERSONALITY DISORDER
  2. VALPROIC ACID [Suspect]
     Indication: BIPOLAR DISORDER
  3. VALPROIC ACID [Suspect]
     Indication: IMPULSE-CONTROL DISORDER

REACTIONS (2)
  - Hyperammonaemia [Recovered/Resolved]
  - Neurotoxicity [Recovered/Resolved]
